FAERS Safety Report 24989992 (Version 1)
Quarter: 2025Q1

REPORT INFORMATION
  Report Type: Report from Study
  Country: GB (occurrence: GB)
  Receive Date: 20250220
  Receipt Date: 20250220
  Transmission Date: 20250408
  Serious: Yes (Other)
  Sender: ALEXION PHARMACEUTICALS
  Company Number: GB-DRUGSU-E3DB4A

PATIENT
  Age: 74 Year

DRUGS (102)
  1. AZD-1222 [Suspect]
     Active Substance: AZD-1222
     Indication: COVID-19 immunisation
  2. AZD-1222 [Suspect]
     Active Substance: AZD-1222
     Indication: COVID-19 immunisation
  3. AZD-1222 [Suspect]
     Active Substance: AZD-1222
     Indication: COVID-19 immunisation
  4. BUDESONIDE [Suspect]
     Active Substance: BUDESONIDE
     Indication: Product used for unknown indication
  5. BUDESONIDE [Suspect]
     Active Substance: BUDESONIDE
     Dosage: 1 DOSAGE FORM, QD
  6. OMEPRAZOLE [Suspect]
     Active Substance: OMEPRAZOLE
     Dosage: 20 MILLIGRAM, BID
  7. ROSUVASTATIN [Suspect]
     Active Substance: ROSUVASTATIN
     Dosage: 10 MILLIGRAM, QD
  8. FELODIPINE [Suspect]
     Active Substance: FELODIPINE
     Indication: Hypertension
     Dosage: 2.5 MILLIGRAM, BID
  9. ESOMEPRAZOLE [Suspect]
     Active Substance: ESOMEPRAZOLE
     Indication: Gastritis
  10. DAPAGLIFLOZIN [Suspect]
     Active Substance: DAPAGLIFLOZIN
     Indication: Ill-defined disorder
  11. CANDESARTAN [Suspect]
     Active Substance: CANDESARTAN
  12. ASACOL [Suspect]
     Active Substance: MESALAMINE
     Indication: Colitis ulcerative
     Dosage: 4.8 GRAM, QD
  13. ASACOL [Suspect]
     Active Substance: MESALAMINE
     Indication: Product used for unknown indication
     Dosage: 2.4 GRAM, QD
  14. ASACOL [Suspect]
     Active Substance: MESALAMINE
     Dosage: 6 DOSAGE FORM, QD
  15. ASACOL [Suspect]
     Active Substance: MESALAMINE
     Dosage: 3 GRAM, QD
  16. CORTIFOAM [Suspect]
     Active Substance: HYDROCORTISONE ACETATE
     Indication: Colitis ulcerative
  17. CORTIFOAM [Suspect]
     Active Substance: HYDROCORTISONE ACETATE
     Dosage: 1 DOSAGE FORM, QD
  18. HYDROCORTISONE [Suspect]
     Active Substance: HYDROCORTISONE
     Indication: Product used for unknown indication
  19. ENTYVIO [Suspect]
     Active Substance: VEDOLIZUMAB
     Indication: Colitis ulcerative
  20. ENTYVIO [Suspect]
     Active Substance: VEDOLIZUMAB
     Indication: Deep vein thrombosis
  21. ENTYVIO [Suspect]
     Active Substance: VEDOLIZUMAB
     Dosage: 1 DOSAGE FORM, QD
  22. ENTYVIO [Suspect]
     Active Substance: VEDOLIZUMAB
     Dosage: 1 DOSAGE FORM, QD
  23. ENTYVIO [Suspect]
     Active Substance: VEDOLIZUMAB
  24. HYDROCORTISONE [Suspect]
     Active Substance: HYDROCORTISONE
  25. HYDROCORTISONE [Suspect]
     Active Substance: HYDROCORTISONE
     Dosage: 1 DOSAGE FORM, Q8WK
  26. MESALAMINE [Suspect]
     Active Substance: MESALAMINE
     Indication: Colitis ulcerative
  27. MESALAMINE [Suspect]
     Active Substance: MESALAMINE
  28. MESALAMINE [Suspect]
     Active Substance: MESALAMINE
     Dosage: 4.8 GRAM, QD
  29. MESALAMINE [Suspect]
     Active Substance: MESALAMINE
     Dosage: 3 DOSAGE FORM, BID
  30. MESALAMINE [Suspect]
     Active Substance: MESALAMINE
     Dosage: 2.4 GRAM, QD
  31. MESALAMINE [Suspect]
     Active Substance: MESALAMINE
     Dosage: 6 DOSAGE FORM, QD
  32. MESALAMINE [Suspect]
     Active Substance: MESALAMINE
  33. MESALAMINE [Suspect]
     Active Substance: MESALAMINE
  34. MESALAMINE [Suspect]
     Active Substance: MESALAMINE
  35. MESALAMINE [Suspect]
     Active Substance: MESALAMINE
  36. MESALAMINE [Suspect]
     Active Substance: MESALAMINE
  37. MESALAMINE [Suspect]
     Active Substance: MESALAMINE
  38. MESALAMINE [Suspect]
     Active Substance: MESALAMINE
     Indication: Colitis ulcerative
  39. MESALAMINE [Suspect]
     Active Substance: MESALAMINE
  40. WARFARIN [Suspect]
     Active Substance: WARFARIN
     Indication: Deep vein thrombosis
  41. WARFARIN SODIUM [Suspect]
     Active Substance: WARFARIN SODIUM
  42. WARFARIN SODIUM [Suspect]
     Active Substance: WARFARIN SODIUM
     Dosage: 1 DOSAGE FORM, QD
  43. WARFARIN SODIUM [Suspect]
     Active Substance: WARFARIN SODIUM
     Dosage: 8 DOSAGE FORM, QD
  44. WARFARIN SODIUM [Suspect]
     Active Substance: WARFARIN SODIUM
  45. ADALIMUMAB [Suspect]
     Active Substance: ADALIMUMAB
     Indication: Crohn^s disease
  46. INFLIXIMAB [Suspect]
     Active Substance: INFLIXIMAB
     Indication: Crohn^s disease
  47. INFLIXIMAB [Suspect]
     Active Substance: INFLIXIMAB
  48. INFLIXIMAB [Suspect]
     Active Substance: INFLIXIMAB
  49. INFLIXIMAB [Suspect]
     Active Substance: INFLIXIMAB
  50. INFLIXIMAB [Suspect]
     Active Substance: INFLIXIMAB
  51. PREDNISONE [Suspect]
     Active Substance: PREDNISONE
     Indication: Colitis ulcerative
  52. SULFASALAZINE [Suspect]
     Active Substance: SULFASALAZINE
     Indication: Product used for unknown indication
  53. SULFASALAZINE [Suspect]
     Active Substance: SULFASALAZINE
  54. SULFASALAZINE [Suspect]
     Active Substance: SULFASALAZINE
  55. ALBENDAZOLE [Suspect]
     Active Substance: ALBENDAZOLE
     Indication: Colitis ulcerative
  56. EPINEPHRINE [Suspect]
     Active Substance: EPINEPHRINE
  57. ASPIRIN [Suspect]
     Active Substance: ASPIRIN
     Dosage: 200 MILLIGRAM, QD
  58. MEBEVERINE [Suspect]
     Active Substance: MEBEVERINE
  59. ESCITALOPRAM [Suspect]
     Active Substance: ESCITALOPRAM OXALATE
     Dosage: 10 MILLIGRAM, QD
  60. GABAPENTIN [Suspect]
     Active Substance: GABAPENTIN
  61. LEVOTHYROXINE [Suspect]
     Active Substance: LEVOTHYROXINE
  62. CHOLECALCIFEROL [Suspect]
     Active Substance: CHOLECALCIFEROL
  63. METFORMIN [Suspect]
     Active Substance: METFORMIN HYDROCHLORIDE
  64. OXYCODONE [Suspect]
     Active Substance: OXYCODONE
  65. ACETAMINOPHEN [Suspect]
     Active Substance: ACETAMINOPHEN
  66. COMIRNATY (TOZINAMERAN) [Suspect]
     Active Substance: TOZINAMERAN
  67. FUROSEMIDE [Suspect]
     Active Substance: FUROSEMIDE
     Dosage: 20 MILLIGRAM, QD
  68. HUMIRA [Concomitant]
     Active Substance: ADALIMUMAB
  69. METHOTREXATE [Concomitant]
     Active Substance: METHOTREXATE
  70. XELJANZ [Concomitant]
     Active Substance: TOFACITINIB CITRATE
  71. CALCIUM CARBONATE\CHOLECALCIFEROL [Concomitant]
     Active Substance: CALCIUM CARBONATE\CHOLECALCIFEROL
  72. GAVISCON [Concomitant]
     Active Substance: ALUMINUM HYDROXIDE\MAGNESIUM CARBONATE
  73. RENNIE [Concomitant]
  74. ASPIRIN [Concomitant]
     Active Substance: ASPIRIN
  75. CITALOPRAM [Concomitant]
     Active Substance: CITALOPRAM
  76. DAPAGLIFLOZIN [Concomitant]
     Active Substance: DAPAGLIFLOZIN
  77. LANSOPRAZOLE [Concomitant]
     Active Substance: LANSOPRAZOLE
  78. PREGABALIN [Concomitant]
     Active Substance: PREGABALIN
  79. ACETAMINOPHEN [Concomitant]
     Active Substance: ACETAMINOPHEN
  80. RAMIPRIL [Concomitant]
     Active Substance: RAMIPRIL
  81. TAMSULOSIN HYDROCHLORIDE [Concomitant]
     Active Substance: TAMSULOSIN HYDROCHLORIDE
  82. BISOPROLOL [Concomitant]
     Active Substance: BISOPROLOL
  83. AMLODIPINE [Concomitant]
     Active Substance: AMLODIPINE BESYLATE
  84. DORZOLAMIDE [Concomitant]
     Active Substance: DORZOLAMIDE
  85. FOLIC ACID [Concomitant]
     Active Substance: FOLIC ACID
  86. LATANOPROST [Concomitant]
     Active Substance: LATANOPROST
  87. POLYETHYLENE GLYCOL 3350\POTASSIUM CHLORIDE\SODIUM BICARBONATE\SODIUM [Concomitant]
     Active Substance: POLYETHYLENE GLYCOL 3350\POTASSIUM CHLORIDE\SODIUM BICARBONATE\SODIUM CHLORIDE
  88. LATANOPROST [Concomitant]
     Active Substance: LATANOPROST
  89. NITROFURANTOIN [Concomitant]
     Active Substance: NITROFURANTOIN
  90. RIVAROXABAN [Concomitant]
     Active Substance: RIVAROXABAN
  91. ZEROBASE [Concomitant]
  92. BETNOVATE [Concomitant]
     Active Substance: BETAMETHASONE
  93. EMPAGLIFLOZIN [Concomitant]
     Active Substance: EMPAGLIFLOZIN
  94. ROSUVASTATIN [Concomitant]
     Active Substance: ROSUVASTATIN
  95. OMEPRAZOLE [Concomitant]
     Active Substance: OMEPRAZOLE
  96. PRAVASTATIN [Concomitant]
     Active Substance: PRAVASTATIN
  97. DORZOLAMIDE [Concomitant]
     Active Substance: DORZOLAMIDE
  98. CLOBETASONE BUTYRATE [Concomitant]
     Active Substance: CLOBETASONE BUTYRATE
  99. POLYETHYLENE GLYCOL 3350\POTASSIUM CHLORIDE\SODIUM BICARBONATE\SODIUM [Concomitant]
     Active Substance: POLYETHYLENE GLYCOL 3350\POTASSIUM CHLORIDE\SODIUM BICARBONATE\SODIUM CHLORIDE
  100. UNSPECIFIED INGREDIENT [Concomitant]
     Active Substance: UNSPECIFIED INGREDIENT
  101. RIVAROXABAN [Concomitant]
     Active Substance: RIVAROXABAN
  102. ZEROBASE [Concomitant]

REACTIONS (58)
  - Frequent bowel movements [Unknown]
  - Deep vein thrombosis [Unknown]
  - Impaired quality of life [Unknown]
  - Condition aggravated [Unknown]
  - Weight decreased [Unknown]
  - Colitis ulcerative [Unknown]
  - Product use in unapproved indication [Unknown]
  - Drug ineffective [Unknown]
  - Off label use [Unknown]
  - Loss of personal independence in daily activities [Unknown]
  - Loss of personal independence in daily activities [Unknown]
  - Bronchiectasis [Unknown]
  - Colitis ulcerative [Unknown]
  - Tubulointerstitial nephritis [Recovering/Resolving]
  - Pulmonary embolism [Recovered/Resolved with Sequelae]
  - Cerebrovascular accident [Recovered/Resolved]
  - Influenza [Recovered/Resolved]
  - Nasopharyngitis [Recovered/Resolved]
  - Rhinitis [Not Recovered/Not Resolved]
  - Catarrh [Not Recovered/Not Resolved]
  - Inappropriate schedule of product administration [Not Recovered/Not Resolved]
  - Rectal haemorrhage [Unknown]
  - Stress [Not Recovered/Not Resolved]
  - Intentional product use issue [Not Recovered/Not Resolved]
  - Impaired work ability [Unknown]
  - Medication error [Unknown]
  - Steroid dependence [Unknown]
  - Haematochezia [Unknown]
  - Accidental overdose [Recovered/Resolved]
  - Confusional state [Unknown]
  - Gingival pain [Recovered/Resolved with Sequelae]
  - Lethargy [Unknown]
  - COVID-19 [Recovered/Resolved]
  - Burns second degree [Recovered/Resolved]
  - Arthritis [Not Recovered/Not Resolved]
  - Tinnitus [Not Recovered/Not Resolved]
  - Parosmia [Not Recovered/Not Resolved]
  - Rash [Recovered/Resolved]
  - Eczema [Recovered/Resolved]
  - Swollen tongue [Recovered/Resolved]
  - Nightmare [Recovered/Resolved]
  - Systemic lupus erythematosus [Recovered/Resolved]
  - Hypopnoea [Recovered/Resolved with Sequelae]
  - Migraine [Recovering/Resolving]
  - Rash [Not Recovered/Not Resolved]
  - Vertigo [Recovering/Resolving]
  - Tinnitus [Not Recovered/Not Resolved]
  - Cardiac murmur [Recovering/Resolving]
  - Pain in extremity [Recovered/Resolved]
  - Abdominal discomfort [Not Recovered/Not Resolved]
  - Depression [Recovered/Resolved]
  - Dysgeusia [Not Recovered/Not Resolved]
  - Fatigue [Recovered/Resolved]
  - Pyrexia [Unknown]
  - Somnolence [Recovered/Resolved]
  - Pain [Recovered/Resolved]
  - Headache [Recovered/Resolved]
  - Palpitations [Not Recovered/Not Resolved]
